FAERS Safety Report 5079730-7 (Version None)
Quarter: 2006Q3

REPORT INFORMATION
  Report Type: 
  Country: None (occurrence: None)
  Receive Date: 20060815
  Receipt Date: 20050812
  Transmission Date: 20061208
  Serious: No
  Sender: FDA-Public Use
  Company Number: US-GLAXOSMITHKLINE-A0570194A

PATIENT
  Sex: Female

DRUGS (4)
  1. TAGAMET HB 200 [Suspect]
  2. ALLEGRA [Concomitant]
  3. SINGULAIR [Concomitant]
  4. ZYRTEC [Concomitant]

REACTIONS (4)
  - BLISTER [None]
  - BURNING SENSATION [None]
  - CHEILITIS [None]
  - LIP PAIN [None]
